FAERS Safety Report 5266533-3 (Version None)
Quarter: 2007Q1

REPORT INFORMATION
  Report Type: 
  Country: None (occurrence: None)
  Receive Date: 20070315
  Receipt Date: 20070312
  Transmission Date: 20070707
  Serious: Yes (Hospitalization)
  Sender: FDA-Public Use
  Company Number: FR-ROXANE LABORATORIES, INC-2007-BP-03373RO

PATIENT
  Age: 51 Year
  Sex: Male

DRUGS (5)
  1. ZIDOVUDINE [Suspect]
     Indication: HIV INFECTION
     Route: 048
  2. LAMIVUDINE [Suspect]
     Indication: HIV INFECTION
     Route: 048
  3. FOSAMPRENAVIR [Suspect]
     Indication: HIV INFECTION
     Route: 048
  4. RITONAVIR [Suspect]
     Indication: HIV INFECTION
     Route: 048
  5. TRIMETHOPRIM + SULFAMETHOXAZOLE [Suspect]
     Indication: PNEUMOCYSTIS JIROVECI INFECTION
     Route: 048

REACTIONS (15)
  - BLOOD CREATININE INCREASED [None]
  - C-REACTIVE PROTEIN INCREASED [None]
  - CHOLESTASIS [None]
  - DISSEMINATED TUBERCULOSIS [None]
  - GRANULOMA [None]
  - HAEMATURIA [None]
  - IMMUNE RECONSTITUTION SYNDROME [None]
  - LEUKOCYTURIA [None]
  - LYMPHADENOPATHY [None]
  - NEPHRITIS INTERSTITIAL [None]
  - PROTEINURIA [None]
  - PYREXIA [None]
  - RASH ERYTHEMATOUS [None]
  - SPLENOMEGALY [None]
  - WEIGHT DECREASED [None]
